FAERS Safety Report 5002229-0 (Version None)
Quarter: 2006Q2

REPORT INFORMATION
  Report Type: 
  Country: None (occurrence: None)
  Receive Date: 20060511
  Receipt Date: 20060511
  Transmission Date: 20061013
  Serious: Yes (Other)
  Sender: FDA-Public Use
  Company Number: None

PATIENT
  Age: 53 Year
  Sex: Female
  Weight: 72.5755 kg

DRUGS (2)
  1. REMICADE [Suspect]
     Indication: CROHN'S DISEASE
     Dosage: 180 MG
     Dates: start: 20060331
  2. REMICADE [Suspect]
     Indication: CROHN'S DISEASE
     Dosage: 370 MG
     Dates: start: 20060426

REACTIONS (2)
  - PRURITUS [None]
  - RASH [None]
